FAERS Safety Report 19395237 (Version 1)
Quarter: 2021Q2

REPORT INFORMATION
  Report Type: Spontaneous
  Country: US (occurrence: US)
  Receive Date: 20210609
  Receipt Date: 20210609
  Transmission Date: 20210717
  Serious: No
  Sender: FDA-Public Use
  Company Number: US-MYLANLABS-2021M1032267

PATIENT
  Age: 62 Year
  Sex: Female

DRUGS (5)
  1. LIDOCAINE PATCH [Suspect]
     Active Substance: LIDOCAINE
     Indication: BACK PAIN
     Dosage: UNK
     Route: 003
     Dates: start: 20210530, end: 2021
  2. LIDOCAINE PATCH [Suspect]
     Active Substance: LIDOCAINE
     Indication: LUMBAR SPINAL STENOSIS
     Dosage: UNK
     Route: 003
     Dates: start: 20210530, end: 2021
  3. LIDOCAINE PATCH [Suspect]
     Active Substance: LIDOCAINE
     Dosage: UNK
     Route: 003
     Dates: start: 20210530, end: 2021
  4. NAPROXEN. [Concomitant]
     Active Substance: NAPROXEN
     Indication: BACK PAIN
     Dosage: UNK
  5. LIDOCAINE PATCH [Suspect]
     Active Substance: LIDOCAINE
     Dosage: UNK
     Dates: start: 2016

REACTIONS (2)
  - Product adhesion issue [Not Recovered/Not Resolved]
  - Product use in unapproved indication [Not Recovered/Not Resolved]

NARRATIVE: CASE EVENT DATE: 2016
